FAERS Safety Report 8915372 (Version 1)
Quarter: 2012Q4

REPORT INFORMATION
  Report Type: 
  Country: US (occurrence: US)
  Receive Date: 20121119
  Receipt Date: 20121119
  Transmission Date: 20130627
  Serious: Yes (Death)
  Sender: FDA-Public Use
  Company Number: US-PFIZER INC-2012283806

PATIENT
  Age: 62 Year
  Sex: Female

DRUGS (1)
  1. AROMASIN [Suspect]
     Indication: METASTATIC BREAST CANCER
     Dosage: 25 mg, UNK
     Dates: start: 20120723, end: 20120723

REACTIONS (2)
  - Disease progression [Fatal]
  - Breast cancer metastatic [Fatal]
